FAERS Safety Report 21969049 (Version 1)
Quarter: 2023Q1

REPORT INFORMATION
  Report Type: Spontaneous
  Country: ES (occurrence: ES)
  Receive Date: 20230208
  Receipt Date: 20230208
  Transmission Date: 20230417
  Serious: Yes (Hospitalization)
  Sender: FDA-Public Use
  Company Number: None

PATIENT
  Age: 76 Year
  Sex: Female

DRUGS (4)
  1. BEVACIZUMAB [Suspect]
     Active Substance: BEVACIZUMAB
     Indication: Colorectal cancer
     Dosage: 225 MILLIGRAMS (5MG/M2)
     Route: 042
     Dates: start: 20220803, end: 20221016
  2. FLUOROURACIL [Suspect]
     Active Substance: FLUOROURACIL
     Indication: Colorectal cancer
     Dosage: 536 MILLIGRAMS (400MG/M2)/3216 MILLIGRAMS (2400MG/M2)
     Route: 042
     Dates: start: 20220803, end: 20221016
  3. OXALIPLATIN [Suspect]
     Active Substance: OXALIPLATIN
     Indication: Colorectal cancer
     Dosage: 113.9MILLIGRAMS (85MG/M2) REDUCTION  80% TO 91.12MILLIGRAMS (68MG/M2)
     Route: 042
     Dates: start: 20220803, end: 20221016
  4. LEUCOVORIN [Concomitant]
     Active Substance: LEUCOVORIN
     Indication: Colorectal cancer
     Dosage: 536 MILLIGRAMS (400MG/M2)
     Route: 042
     Dates: start: 20220803, end: 20221016

REACTIONS (2)
  - Neutropenia [Recovered/Resolved]
  - Anaemia [Recovered/Resolved]

NARRATIVE: CASE EVENT DATE: 20220801
